FAERS Safety Report 4875125-7 (Version None)
Quarter: 2006Q1

REPORT INFORMATION
  Report Type: 
  Country: None (occurrence: None)
  Receive Date: 20060109
  Receipt Date: 20051230
  Transmission Date: 20060701
  Serious: Yes (Hospitalization, Other)
  Sender: FDA-Public Use
  Company Number: 2006UW00009

PATIENT
  Sex: Male

DRUGS (2)
  1. TOPROL-XL [Suspect]
     Route: 048
  2. TOPAMAX [Suspect]
     Route: 048

REACTIONS (3)
  - MEDICATION ERROR [None]
  - SUPRAVENTRICULAR TACHYCARDIA [None]
  - WRONG DRUG ADMINISTERED [None]
